FAERS Safety Report 4699851-8 (Version None)
Quarter: 2005Q2

REPORT INFORMATION
  Report Type: 
  Country: None (occurrence: None)
  Receive Date: 20050624
  Receipt Date: 20050615
  Transmission Date: 20051028
  Serious: Yes (Other)
  Sender: FDA-Public Use
  Company Number: JP-MERCK-0506USA02838

PATIENT
  Age: 58 Year
  Sex: Male

DRUGS (2)
  1. CRIXIVAN [Suspect]
     Indication: HIV INFECTION
     Route: 048
  2. RETROVIR [Suspect]
     Indication: HIV INFECTION
     Route: 048

REACTIONS (2)
  - HAEMODIALYSIS [None]
  - RENAL IMPAIRMENT [None]
